FAERS Safety Report 23475348 (Version 1)
Quarter: 2024Q1

REPORT INFORMATION
  Report Type: Spontaneous
  Country: FR (occurrence: FR)
  Receive Date: 20240204
  Receipt Date: 20240204
  Transmission Date: 20240410
  Serious: No
  Sender: FDA-Public Use
  Company Number: None

PATIENT
  Age: 40 Year
  Sex: Male
  Weight: 95 kg

DRUGS (4)
  1. CABOMETYX [Suspect]
     Active Substance: CABOZANTINIB S-MALATE
     Indication: Renal cancer
     Dosage: UNK
     Route: 048
     Dates: start: 20220302
  2. IPILIMUMAB [Concomitant]
     Active Substance: IPILIMUMAB
     Indication: Renal cancer
     Dosage: UNK
  3. NIVOLUMAB [Concomitant]
     Active Substance: NIVOLUMAB
     Indication: Renal cancer
     Dosage: UNK
  4. INNOHEP [Concomitant]
     Active Substance: TINZAPARIN SODIUM
     Indication: Thrombosis prophylaxis
     Dosage: UNK

REACTIONS (11)
  - Palpitations [Recovered/Resolved]
  - Abdominal pain [Recovering/Resolving]
  - Diarrhoea [Not Recovered/Not Resolved]
  - Mucosal inflammation [Recovered/Resolved]
  - Dizziness [Recovered/Resolved]
  - Hypoglycaemia [Recovered/Resolved]
  - Rash maculo-papular [Recovered/Resolved]
  - Dysgeusia [Recovered/Resolved]
  - Dry skin [Not Recovered/Not Resolved]
  - Palmar-plantar erythrodysaesthesia syndrome [Not Recovered/Not Resolved]
  - Asthenia [Not Recovered/Not Resolved]

NARRATIVE: CASE EVENT DATE: 20220312
